FAERS Safety Report 25495216 (Version 1)
Quarter: 2025Q2

REPORT INFORMATION
  Report Type: Spontaneous
  Country: US (occurrence: US)
  Receive Date: 20250630
  Receipt Date: 20250630
  Transmission Date: 20250716
  Serious: Yes (Hospitalization, Other)
  Sender: PFIZER
  Company Number: US-PFIZER INC-PV202500074213

PATIENT
  Age: 85 Year
  Sex: Female

DRUGS (2)
  1. PREMARIN [Suspect]
     Active Substance: ESTROGENS, CONJUGATED
     Indication: Osteoporosis
     Dosage: 0.9 MG, DAILY
  2. PROVERA [Suspect]
     Active Substance: MEDROXYPROGESTERONE ACETATE
     Indication: Osteoporosis
     Dosage: 5 MG, DAILY(FOR 7 DAYS OF EVERY MONTH)

REACTIONS (2)
  - Mania [Recovering/Resolving]
  - Off label use [Unknown]
